FAERS Safety Report 12861151 (Version 1)
Quarter: 2016Q4

REPORT INFORMATION
  Report Type: Spontaneous
  Country: US (occurrence: US)
  Receive Date: 20161019
  Receipt Date: 20161019
  Transmission Date: 20170207
  Serious: Yes (Hospitalization)
  Sender: FDA-Public Use
  Company Number: US-BEH-2016061953

PATIENT
  Age: 48 Year
  Sex: Female
  Weight: 53.71 kg

DRUGS (19)
  1. RITUXAN [Concomitant]
     Active Substance: RITUXIMAB
  2. EPIPEN [Concomitant]
     Active Substance: EPINEPHRINE
  3. PATANASE [Concomitant]
     Active Substance: OLOPATADINE HYDROCHLORIDE
  4. DIPHENHYDRAMINE. [Concomitant]
     Active Substance: DIPHENHYDRAMINE
  5. ASPIRIN. [Concomitant]
     Active Substance: ASPIRIN
  6. ENTOCORT [Concomitant]
     Active Substance: BUDESONIDE
  7. SODIUM CHLORIDE. [Concomitant]
     Active Substance: SODIUM CHLORIDE
  8. GAMUNEX [Concomitant]
     Active Substance: HUMAN IMMUNOGLOBULIN G
  9. BERINERT [Suspect]
     Active Substance: HUMAN C1-ESTERASE INHIBITOR
     Indication: HEREDITARY ANGIOEDEMA
     Route: 042
     Dates: start: 20151208
  10. CYTOTEC [Concomitant]
     Active Substance: MISOPROSTOL
  11. VALIUM [Concomitant]
     Active Substance: DIAZEPAM
  12. CYMBALTA [Concomitant]
     Active Substance: DULOXETINE HYDROCHLORIDE
  13. ZANTAC [Concomitant]
     Active Substance: RANITIDINE HYDROCHLORIDE
  14. PRILOSEC [Concomitant]
     Active Substance: OMEPRAZOLE MAGNESIUM
  15. ZYRTEC [Concomitant]
     Active Substance: CETIRIZINE HYDROCHLORIDE
  16. ACETAMINOPHEN. [Concomitant]
     Active Substance: ACETAMINOPHEN
  17. PREDNISONE. [Concomitant]
     Active Substance: PREDNISONE
  18. NASONEX [Concomitant]
     Active Substance: MOMETASONE FUROATE
  19. MULTIVITAMINS [Concomitant]
     Active Substance: VITAMINS

REACTIONS (2)
  - Feeding disorder [Unknown]
  - Hereditary angioedema [Unknown]

NARRATIVE: CASE EVENT DATE: 20160424
